FAERS Safety Report 11704705 (Version 3)
Quarter: 2015Q4

REPORT INFORMATION
  Report Type: Report from Study
  Country: CA (occurrence: CA)
  Receive Date: 20151106
  Receipt Date: 20151211
  Transmission Date: 20160304
  Serious: Yes (Death, Other)
  Sender: FDA-Public Use
  Company Number: CA-ABBVIE-15P-028-1494558-00

PATIENT
  Sex: Male
  Weight: 65.5 kg

DRUGS (1)
  1. LUPRON DEPOT [Suspect]
     Active Substance: LEUPROLIDE ACETATE
     Indication: PROSTATE CANCER
     Route: 030
     Dates: start: 20130301, end: 20150708

REACTIONS (2)
  - Renal failure [Fatal]
  - Prostate cancer metastatic [Fatal]
